FAERS Safety Report 4495725-6 (Version None)
Quarter: 2004Q3

REPORT INFORMATION
  Report Type: 
  Country: None (occurrence: None)
  Receive Date: 20040921
  Receipt Date: 20031217
  Transmission Date: 20050211
  Serious: Yes (Death)
  Sender: FDA-Public Use
  Company Number: 163-20785-03120440

PATIENT
  Age: 86 Year
  Sex: Male

DRUGS (1)
  1. THALOMID [Suspect]
     Indication: PROSTATE CANCER
     Dosage: 150 MG, DAILY, ORAL
     Route: 048
     Dates: start: 20030611, end: 20030101

REACTIONS (1)
  - DEATH [None]
